FAERS Safety Report 12557254 (Version 2)
Quarter: 2016Q3

REPORT INFORMATION
  Report Type: Spontaneous
  Country: US (occurrence: US)
  Receive Date: 20160714
  Receipt Date: 20160802
  Transmission Date: 20161109
  Serious: No
  Sender: FDA-Public Use
  Company Number: US-PFIZER INC-2855731

PATIENT
  Age: 51 Year
  Sex: Male
  Weight: 95.25 kg

DRUGS (2)
  1. LIDOCAINE. [Concomitant]
     Active Substance: LIDOCAINE
     Indication: MEDICATION DILUTION
     Dosage: NOT REPORTED
     Route: 030
     Dates: start: 20150427, end: 20150427
  2. CEFTRIAXONE SODIUM. [Suspect]
     Active Substance: CEFTRIAXONE SODIUM
     Indication: PRODUCT USED FOR UNKNOWN INDICATION
     Dosage: 1 G, X1
     Route: 030
     Dates: start: 20150427, end: 20150427

REACTIONS (2)
  - No adverse event [Unknown]
  - Incorrect route of drug administration [Recovered/Resolved]

NARRATIVE: CASE EVENT DATE: 20150427
